FAERS Safety Report 9901457 (Version 2)
Quarter: 2014Q1

REPORT INFORMATION
  Report Type: Spontaneous
  Country: US (occurrence: US)
  Receive Date: 20140217
  Receipt Date: 20140217
  Transmission Date: 20141002
  Serious: Yes (Other)
  Sender: FDA-Public Use
  Company Number: US-GILEAD-2011-0041460

PATIENT
  Age: 87 Year
  Sex: Female

DRUGS (2)
  1. LETAIRIS [Suspect]
     Indication: PRODUCT USED FOR UNKNOWN INDICATION
     Route: 048
     Dates: start: 20110429, end: 201106
  2. ADCIRCA [Concomitant]

REACTIONS (2)
  - Drug ineffective [Unknown]
  - Nasal congestion [Not Recovered/Not Resolved]
